FAERS Safety Report 6123713-2 (Version None)
Quarter: 2009Q1

REPORT INFORMATION
  Report Type: 
  Country: None (occurrence: None)
  Receive Date: 20090318
  Receipt Date: 20090318
  Transmission Date: 20090719
  Serious: Yes (Hospitalization)
  Sender: FDA-Public Use
  Company Number: None

PATIENT
  Age: 82 Year
  Sex: Male
  Weight: 74.09 kg

DRUGS (1)
  1. DIGOXIN [Suspect]
     Dosage: 0.25 MG EVERY DAY PO
     Route: 048
     Dates: start: 20070413, end: 20080724

REACTIONS (1)
  - BRADYCARDIA [None]
